FAERS Safety Report 24166282 (Version 1)
Quarter: 2024Q3

REPORT INFORMATION
  Report Type: Report from Study
  Country: US (occurrence: US)
  Receive Date: 20240802
  Receipt Date: 20240802
  Transmission Date: 20241017
  Serious: Yes (Other)
  Sender: ABBVIE
  Company Number: US-ABBVIE-5862156

PATIENT
  Sex: Male

DRUGS (1)
  1. RINVOQ [Suspect]
     Active Substance: UPADACITINIB
     Indication: Rheumatoid arthritis
     Route: 048
     Dates: start: 20240224

REACTIONS (5)
  - Spinal nerve stimulator implantation [Unknown]
  - Illness [Recovering/Resolving]
  - Nasopharyngitis [Unknown]
  - Dyspnoea at rest [Unknown]
  - Hot flush [Recovering/Resolving]

NARRATIVE: CASE EVENT DATE: 20240101
